FAERS Safety Report 11111650 (Version 5)
Quarter: 2015Q4

REPORT INFORMATION
  Report Type: Report from Study
  Country: US (occurrence: US)
  Receive Date: 20150514
  Receipt Date: 20151116
  Transmission Date: 20160304
  Serious: Yes (Other)
  Sender: FDA-Public Use
  Company Number: US-AMGEN-USASP2014071246

PATIENT
  Age: 35 Year
  Sex: Female

DRUGS (1)
  1. ENBREL [Suspect]
     Active Substance: ETANERCEPT
     Indication: PSORIATIC ARTHROPATHY
     Dosage: 50 MG, QWK
     Route: 065
     Dates: start: 2002, end: 201401

REACTIONS (4)
  - Arthralgia [Not Recovered/Not Resolved]
  - Prolonged labour [Recovered/Resolved]
  - Pregnancy [Recovered/Resolved]
  - Obstructed labour [Recovered/Resolved]

NARRATIVE: CASE EVENT DATE: 201312
